FAERS Safety Report 24423279 (Version 1)
Quarter: 2024Q4

REPORT INFORMATION
  Report Type: Spontaneous
  Country: US (occurrence: US)
  Receive Date: 20241010
  Receipt Date: 20241010
  Transmission Date: 20250115
  Serious: Yes (Death, Other)
  Sender: BRISTOL MYERS SQUIBB
  Company Number: US-BRISTOL-MYERS SQUIBB COMPANY-2024-160075

PATIENT
  Age: 94 Year
  Sex: Female

DRUGS (3)
  1. ELIQUIS [Suspect]
     Active Substance: APIXABAN
     Indication: Cerebrovascular accident
     Route: 048
  2. ELIQUIS [Suspect]
     Active Substance: APIXABAN
     Indication: Atrial fibrillation
  3. ELIQUIS [Suspect]
     Active Substance: APIXABAN
     Indication: Hypertension

REACTIONS (1)
  - Cardiac failure congestive [Fatal]

NARRATIVE: CASE EVENT DATE: 20240929
